FAERS Safety Report 5321321-4 (Version None)
Quarter: 2007Q2

REPORT INFORMATION
  Report Type: 
  Country: None (occurrence: None)
  Receive Date: 20070507
  Receipt Date: 20070507
  Transmission Date: 20071010
  Serious: Yes (Other)
  Sender: FDA-Public Use
  Company Number: None

PATIENT
  Sex: Male
  Weight: 63.1 kg

DRUGS (1)
  1. CHLORDIAZEPOXIDE 25MG HYDROCHLORIDE CAP [Suspect]
     Indication: AGITATION
     Dosage: 25MG Q4H PRN PO
     Route: 048
     Dates: start: 20070427, end: 20070429

REACTIONS (1)
  - PLATELET COUNT DECREASED [None]
